FAERS Safety Report 4321053-5 (Version None)
Quarter: 2004Q1

REPORT INFORMATION
  Report Type: 
  Country: None (occurrence: None)
  Receive Date: 20040315
  Receipt Date: 20030730
  Transmission Date: 20041129
  Serious: Yes (Other)
  Sender: FDA-Public Use
  Company Number: PHEH2003US06831

PATIENT
  Age: 35 Year
  Sex: Male

DRUGS (2)
  1. TRILEPTAL [Suspect]
     Indication: AFFECTIVE DISORDER
     Dosage: BID, ORAL
     Route: 048
     Dates: start: 20020101
  2. REMERON [Concomitant]

REACTIONS (4)
  - CONVULSION [None]
  - INSOMNIA [None]
  - ROAD TRAFFIC ACCIDENT [None]
  - TREMOR [None]
